FAERS Safety Report 6122342-4 (Version None)
Quarter: 2009Q1

REPORT INFORMATION
  Report Type: 
  Country: None (occurrence: None)
  Receive Date: 20090312
  Receipt Date: 20090302
  Transmission Date: 20090719
  Serious: Yes (Other)
  Sender: FDA-Public Use
  Company Number: THYM-1000884

PATIENT
  Age: 28 Year
  Sex: Female

DRUGS (19)
  1. THYMOGLOBULIN [Suspect]
     Indication: IMMUNOSUPPRESSION
     Dosage: 1.5 MG/KG, ONCE, INTRAVENOUS : 1.5 MG/KG, QD, INTRAVENOUS
     Route: 042
     Dates: start: 20081224, end: 20081224
  2. THYMOGLOBULIN [Suspect]
     Indication: IMMUNOSUPPRESSION
     Dosage: 1.5 MG/KG, ONCE, INTRAVENOUS : 1.5 MG/KG, QD, INTRAVENOUS
     Route: 042
     Dates: start: 20081227
  3. ARANESP [Concomitant]
  4. IRBESARTAN [Concomitant]
  5. FUROSEMIDE [Concomitant]
  6. SIMVASTATIN [Concomitant]
  7. DOXAZOSIN (DOXAZOSIN) [Concomitant]
  8. CEPHALEXIN [Concomitant]
  9. ALFACALCIDOL (ALFACALCIDOL) [Concomitant]
  10. PROPOFOL [Concomitant]
  11. FENTANYL-100 [Concomitant]
  12. REMIFENTANIL (REMIFENTANIL) [Concomitant]
  13. CISATRACURIUM (CISATRACURIUM) [Concomitant]
  14. HYDROCORTISONE [Concomitant]
  15. HYDROCORTISONE [Concomitant]
  16. HYDROCORTISONE [Concomitant]
  17. HYDROCORTISONE [Concomitant]
  18. PIRITION (CHLORPHENAMINE MALEATE) [Concomitant]
  19. PIRITION (CHLORPHENAMINE MALEATE) [Concomitant]

REACTIONS (11)
  - BLOOD PH DECREASED [None]
  - BLOOD POTASSIUM INCREASED [None]
  - BLOOD PRESSURE DECREASED [None]
  - BLOOD SODIUM DECREASED [None]
  - CARDIAC ARREST [None]
  - DIASTOLIC DYSFUNCTION [None]
  - HAEMOGLOBIN DECREASED [None]
  - INCORRECT DRUG ADMINISTRATION RATE [None]
  - MEDICATION ERROR [None]
  - OXYGEN SATURATION DECREASED [None]
  - VENTRICULAR FIBRILLATION [None]
